FAERS Safety Report 5206077-8 (Version None)
Quarter: 2007Q1

REPORT INFORMATION
  Report Type: 
  Country: None (occurrence: None)
  Receive Date: 20070111
  Receipt Date: 20070108
  Transmission Date: 20070707
  Serious: Yes (Hospitalization)
  Sender: FDA-Public Use
  Company Number: US-AMGEN-US202938

PATIENT
  Sex: Male

DRUGS (2)
  1. ENBREL [Suspect]
     Indication: RHEUMATOID ARTHRITIS
     Route: 058
     Dates: start: 20051108
  2. METHOTREXATE [Concomitant]
     Route: 048
     Dates: start: 20051108

REACTIONS (5)
  - CARDIAC ARREST [None]
  - CONVULSION [None]
  - EMOTIONAL DISORDER [None]
  - RESPIRATORY ARREST [None]
  - RHEUMATOID ARTHRITIS [None]
